FAERS Safety Report 9949964 (Version 1)
Quarter: 2014Q1

REPORT INFORMATION
  Report Type: Report from Study
  Country: US (occurrence: US)
  Receive Date: 20140304
  Receipt Date: 20140304
  Transmission Date: 20141002
  Serious: No
  Sender: FDA-Public Use
  Company Number: US-ABBVIE-13P-163-1069262-00

PATIENT
  Age: 66 Year
  Sex: Female

DRUGS (14)
  1. HUMIRA [Suspect]
     Indication: PSORIASIS
     Dates: start: 201212
  2. SORILUX [Concomitant]
     Indication: PRODUCT USED FOR UNKNOWN INDICATION
     Dosage: APPLIED ON WEEKENDS ONLY TO THE AFFECTED AREAS
     Route: 061
  3. TRIAMCINOLONE [Concomitant]
     Indication: PRODUCT USED FOR UNKNOWN INDICATION
     Dosage: APPLIED DURING THE WEEKDAYS TO THE AFFECTED AREAS
     Route: 061
  4. REQUIP [Concomitant]
     Indication: MUSCLE SPASMS
     Dosage: 0.5 MG, 1 TAB AT NIGHT
  5. ATORVASTATIN [Concomitant]
     Indication: BLOOD CHOLESTEROL INCREASED
  6. ZETIA [Concomitant]
     Indication: BLOOD CHOLESTEROL INCREASED
  7. LABETALOL [Concomitant]
     Indication: HYPERTENSION
  8. OMEPRAZOLE [Concomitant]
     Indication: GASTRIC DISORDER
  9. BUMETANIDE [Concomitant]
     Indication: DIURETIC THERAPY
  10. METOLAZONE [Concomitant]
     Indication: DIURETIC THERAPY
     Dosage: 5 MG, 1 TAB FOR 3 DAYS EACH WEEK
  11. SERTRALINE [Concomitant]
     Indication: STRESS
  12. ASPIRIN [Concomitant]
     Indication: PRODUCT USED FOR UNKNOWN INDICATION
  13. GINGER ROOT [Concomitant]
     Indication: ARTHRITIS
  14. QUININE [Concomitant]
     Indication: MUSCLE SPASMS
     Dosage: 2 PILLS

REACTIONS (2)
  - Pruritus [Not Recovered/Not Resolved]
  - Drug ineffective [Not Recovered/Not Resolved]
